FAERS Safety Report 24341061 (Version 2)
Quarter: 2024Q4

REPORT INFORMATION
  Report Type: Spontaneous
  Country: TW (occurrence: TW)
  Receive Date: 20240919
  Receipt Date: 20241002
  Transmission Date: 20250114
  Serious: Yes (Hospitalization, Other)
  Sender: MERCK
  Company Number: TW-009507513-2409TWN005327

PATIENT
  Age: 64 Year
  Sex: Female

DRUGS (4)
  1. PEMBROLIZUMAB [Suspect]
     Active Substance: PEMBROLIZUMAB
     Indication: Triple negative breast cancer
     Dosage: 200 MILLIGRAM, Q3W
     Route: 042
     Dates: start: 20230502, end: 20230522
  2. PEMBROLIZUMAB [Suspect]
     Active Substance: PEMBROLIZUMAB
     Dosage: 200 MILLIGRAM, Q3W
     Route: 042
     Dates: start: 20230612, end: 20230703
  3. TAXOL [Suspect]
     Active Substance: PACLITAXEL
     Indication: Triple negative breast cancer
     Dosage: 134 MILLIGRAM, QW
     Route: 042
     Dates: start: 20230502, end: 20230724
  4. CARBOPLATIN [Suspect]
     Active Substance: CARBOPLATIN
     Indication: Triple negative breast cancer
     Dosage: 166 MILLIGRAM, QW
     Route: 042
     Dates: start: 20230502, end: 20230724

REACTIONS (20)
  - Immune-mediated hepatitis [Recovered/Resolved]
  - Febrile neutropenia [Recovered/Resolved]
  - Insomnia [Unknown]
  - Hepatic function abnormal [Unknown]
  - Fungal skin infection [Unknown]
  - Mucosal inflammation [Unknown]
  - Gastroenteritis [Unknown]
  - Fatigue [Unknown]
  - Decreased appetite [Unknown]
  - Asthenia [Unknown]
  - Bone pain [Unknown]
  - Oedema [Unknown]
  - Dizziness [Unknown]
  - Gait disturbance [Unknown]
  - Abdominal pain upper [Unknown]
  - Nausea [Unknown]
  - Malaise [Unknown]
  - Abdominal distension [Unknown]
  - Hypophagia [Unknown]
  - Diarrhoea [Unknown]

NARRATIVE: CASE EVENT DATE: 20230626
